FAERS Safety Report 9910887 (Version 1)
Quarter: 2014Q1

REPORT INFORMATION
  Report Type: Spontaneous
  Country: FR (occurrence: FR)
  Receive Date: 20140219
  Receipt Date: 20140219
  Transmission Date: 20141002
  Serious: Yes (Hospitalization, Other)
  Sender: FDA-Public Use
  Company Number: FR-ASTRAZENECA-2014SE09975

PATIENT
  Age: 63 Year
  Sex: Male

DRUGS (11)
  1. NAROPEINE [Suspect]
     Route: 065
     Dates: start: 20131113, end: 20131113
  2. PROPOFOL [Suspect]
     Dosage: ONCE
     Route: 042
     Dates: start: 20131113, end: 20131113
  3. PARACETAMOL [Suspect]
     Route: 065
     Dates: start: 201311
  4. ACUPAN [Suspect]
     Route: 065
     Dates: start: 20131113, end: 20131113
  5. CEFAZOLINE [Suspect]
     Route: 065
     Dates: start: 201311
  6. TRACRIUM [Suspect]
     Route: 065
     Dates: start: 20131113, end: 20131113
  7. EPHEDRINE [Suspect]
     Route: 065
     Dates: start: 20131113, end: 20131113
  8. NORADRENALIN [Suspect]
     Dosage: ONCE
     Route: 065
     Dates: start: 20131113, end: 20131113
  9. KETAMINE [Suspect]
     Route: 065
     Dates: start: 20131113, end: 20131113
  10. SUFENTANIL [Suspect]
     Route: 065
     Dates: start: 20131113, end: 20131113
  11. GELOFUSIN [Suspect]
     Dosage: ONCE
     Route: 065
     Dates: start: 201311, end: 201311

REACTIONS (9)
  - Cognitive disorder [Not Recovered/Not Resolved]
  - Confusional state [Unknown]
  - Hallucination, visual [Unknown]
  - Disorientation [Unknown]
  - Aggression [Unknown]
  - Dyspraxia [Unknown]
  - Memory impairment [Unknown]
  - Subarachnoid haemorrhage [Unknown]
  - Anxiety [Unknown]
